FAERS Safety Report 4493975-6 (Version None)
Quarter: 2004Q4

REPORT INFORMATION
  Report Type: 
  Country: None (occurrence: None)
  Receive Date: 20041102
  Receipt Date: 20041014
  Transmission Date: 20050328
  Serious: Yes (Hospitalization, Other)
  Sender: FDA-Public Use
  Company Number: US_0410107052

PATIENT
  Age: 72 Year
  Sex: Female
  Weight: 86.1834 kg

DRUGS (3)
  1. HUMALOG [Suspect]
     Dates: start: 20000101
  2. MICRONASE [Concomitant]
  3. GLUCOVANCE [Concomitant]

REACTIONS (11)
  - ABDOMINAL HERNIA [None]
  - ARTHRITIS [None]
  - ASCITES [None]
  - BLOOD GLUCOSE INCREASED [None]
  - DEVICE FAILURE [None]
  - HIP ARTHROPLASTY [None]
  - IATROGENIC INJURY [None]
  - LOOSE STOOLS [None]
  - OEDEMA PERIPHERAL [None]
  - PHARMACEUTICAL PRODUCT COMPLAINT [None]
  - WEIGHT FLUCTUATION [None]
